FAERS Safety Report 10616952 (Version 2)
Quarter: 2014Q4

REPORT INFORMATION
  Report Type: Spontaneous
  Country: US (occurrence: US)
  Receive Date: 20141201
  Receipt Date: 20141212
  Transmission Date: 20150529
  Serious: No
  Sender: FDA-Public Use
  Company Number: US-PFIZER INC-2014326372

PATIENT
  Age: 63 Year
  Sex: Female
  Weight: 100 kg

DRUGS (4)
  1. LYRICA [Suspect]
     Active Substance: PREGABALIN
     Indication: INSOMNIA
  2. LYRICA [Suspect]
     Active Substance: PREGABALIN
     Indication: SPONDYLITIS
     Dosage: 75 MG, 2X/DAY
     Route: 048
  3. LYRICA [Suspect]
     Active Substance: PREGABALIN
     Indication: OSTEOARTHRITIS
     Dosage: 50 MG, 1X/DAY
  4. ADVIL [Concomitant]
     Active Substance: IBUPROFEN
     Indication: PAIN
     Dosage: 200 MG, (2 IN THE MORNING, 2 IN THE AFTERNOON, AND 2 AT NIGHT)

REACTIONS (5)
  - Dry eye [Unknown]
  - Vision blurred [Unknown]
  - Eye irritation [Unknown]
  - Drug ineffective for unapproved indication [Unknown]
  - Dry mouth [Unknown]
